FAERS Safety Report 17200138 (Version 1)
Quarter: 2019Q4

REPORT INFORMATION
  Report Type: Spontaneous
  Country: EE (occurrence: EE)
  Receive Date: 20191226
  Receipt Date: 20191226
  Transmission Date: 20200122
  Serious: Yes (Hospitalization, Other)
  Sender: FDA-Public Use
  Company Number: EE-SAMSUNG BIOEPIS-SB-2019-38578

PATIENT
  Age: 52 Year
  Sex: Male
  Weight: 136 kg

DRUGS (4)
  1. TRIPLIXAM 10 MG/2,5 MG/5 MG [Concomitant]
     Indication: HYPERTENSION
     Dosage: UNKNOWN
     Route: 048
     Dates: start: 20170907
  2. TREXAN [Concomitant]
     Active Substance: METHOTREXATE SODIUM
     Indication: PSORIATIC ARTHROPATHY
     Route: 048
     Dates: start: 20170401, end: 20190520
  3. SALAZOPYRIN EN [Concomitant]
     Active Substance: SULFASALAZINE
     Indication: PRODUCT USED FOR UNKNOWN INDICATION
     Route: 048
  4. FLIXABI [Suspect]
     Active Substance: INFLIXIMAB
     Indication: PSORIATIC ARTHROPATHY
     Route: 042
     Dates: start: 20190107

REACTIONS (8)
  - Bronchitis mycoplasmal [Recovered/Resolved]
  - Pericarditis [Recovered/Resolved]
  - Pyrexia [Recovered/Resolved]
  - Pericardial effusion [Recovered/Resolved]
  - Antinuclear antibody positive [Recovered/Resolved]
  - Cough [Recovered/Resolved]
  - Drug specific antibody present [Recovered/Resolved]
  - Chest pain [Recovered/Resolved]

NARRATIVE: CASE EVENT DATE: 20190510
